FAERS Safety Report 16212882 (Version 1)
Quarter: 2019Q2

REPORT INFORMATION
  Report Type: Spontaneous
  Country: US (occurrence: US)
  Receive Date: 20190418
  Receipt Date: 20190418
  Transmission Date: 20190711
  Serious: Yes (Hospitalization)
  Sender: FDA-Public Use
  Company Number: US-PFIZER INC-2019161118

PATIENT
  Age: 7 Year

DRUGS (1)
  1. BICILLIN C-R 900/300 [Suspect]
     Active Substance: PENICILLIN G BENZATHINE\PENICILLIN G PROCAINE
     Indication: PHARYNGITIS STREPTOCOCCAL
     Dosage: UNK
     Route: 030

REACTIONS (2)
  - Myositis [Recovered/Resolved]
  - Fasciitis [Recovered/Resolved]
